FAERS Safety Report 5760932-9 (Version None)
Quarter: 2008Q2

REPORT INFORMATION
  Report Type: 
  Country: None (occurrence: None)
  Receive Date: 20080606
  Receipt Date: 20071023
  Transmission Date: 20081010
  Serious: Yes (Other)
  Sender: FDA-Public Use
  Company Number: US-ASTRAZENECA-2007UW24455

PATIENT
  Age: 50 Year
  Sex: Male
  Weight: 72.7 kg

DRUGS (1)
  1. PRILOSEC [Suspect]
     Route: 048
     Dates: start: 20030101

REACTIONS (1)
  - PANCYTOPENIA [None]
